FAERS Safety Report 14823007 (Version 3)
Quarter: 2018Q2

REPORT INFORMATION
  Report Type: Spontaneous
  Country: DE (occurrence: DE)
  Receive Date: 20180427
  Receipt Date: 20180626
  Transmission Date: 20180711
  Serious: Yes (Other)
  Sender: FDA-Public Use
  Company Number: DE-BIOGEN-2018BI00548308

PATIENT
  Age: 15 Year

DRUGS (5)
  1. SPINRAZA [Suspect]
     Active Substance: NUSINERSEN
     Indication: SPINAL MUSCULAR ATROPHY
     Route: 037
  2. NALBUPHINE [Concomitant]
     Active Substance: NALBUPHINE
     Indication: SEDATION
     Route: 065
  3. ACC [Concomitant]
     Active Substance: ACETYLCYSTEINE
     Indication: SECRETION DISCHARGE
     Route: 065
  4. SINUSELECT [Concomitant]
     Indication: SECRETION DISCHARGE
     Dosage: AS NEEDED
     Route: 065
  5. MACROGOL [Concomitant]
     Active Substance: POLYETHYLENE GLYCOLS
     Indication: CONSTIPATION
     Dosage: AS NEEDED
     Route: 065

REACTIONS (2)
  - Post lumbar puncture syndrome [Unknown]
  - Post procedural haemorrhage [Recovered/Resolved]

NARRATIVE: CASE EVENT DATE: 20170510
